FAERS Safety Report 4727829-4 (Version None)
Quarter: 2005Q3

REPORT INFORMATION
  Report Type: 
  Country: None (occurrence: None)
  Receive Date: 20050728
  Receipt Date: 20040312
  Transmission Date: 20060218
  Serious: Yes (Hospitalization, Other)
  Sender: FDA-Public Use
  Company Number: US-MERCK-0403USA01341

PATIENT
  Age: 50 Year
  Sex: Female
  Weight: 79 kg

DRUGS (27)
  1. SEROQUEL [Concomitant]
     Route: 065
     Dates: start: 20021101, end: 20030101
  2. SEROQUEL [Concomitant]
     Route: 065
     Dates: start: 20030101, end: 20040801
  3. SOMA [Concomitant]
     Route: 065
     Dates: start: 20020101
  4. PREMARIN [Concomitant]
     Route: 065
     Dates: start: 20020101, end: 20030313
  5. AMBIEN [Concomitant]
     Route: 065
     Dates: start: 20000101
  6. DOXEPIN HYDROCHLORIDE [Concomitant]
     Route: 065
     Dates: start: 20020101
  7. FLEXERIL [Concomitant]
     Route: 048
     Dates: start: 20020101
  8. PROZAC [Concomitant]
     Route: 065
     Dates: start: 20020101, end: 20030101
  9. PROZAC [Concomitant]
     Route: 065
     Dates: start: 20030101
  10. PROZAC [Concomitant]
     Route: 065
     Dates: start: 19980101, end: 20010101
  11. VIOXX [Suspect]
     Indication: BONE DISORDER
     Route: 048
     Dates: start: 20021219, end: 20030827
  12. VIOXX [Suspect]
     Indication: ARTHROPATHY
     Route: 048
     Dates: start: 20021219, end: 20030827
  13. ALTACE [Concomitant]
     Route: 065
     Dates: start: 20030313
  14. NEURONTIN [Concomitant]
     Route: 065
     Dates: start: 20030812
  15. VICODIN [Concomitant]
     Route: 065
     Dates: start: 20030101
  16. POTASSIUM (UNSPECIFIED) [Concomitant]
     Route: 065
     Dates: end: 20030313
  17. FOLTX [Concomitant]
     Route: 065
     Dates: start: 20030313
  18. LIPITOR [Concomitant]
     Route: 065
     Dates: start: 20030320, end: 20030709
  19. ZOCOR [Concomitant]
     Route: 065
     Dates: start: 20030709
  20. PLAVIX [Concomitant]
     Route: 065
     Dates: start: 20030313
  21. TOPROL-XL [Concomitant]
     Route: 065
     Dates: start: 20030313, end: 20030320
  22. TOPROL-XL [Concomitant]
     Route: 065
     Dates: start: 20030320, end: 20040206
  23. PREVACID [Concomitant]
     Route: 065
     Dates: start: 20030101
  24. FOLIC ACID [Concomitant]
     Route: 065
     Dates: start: 20030313
  25. ASPIRIN [Concomitant]
     Route: 065
     Dates: start: 20030313
  26. NITROGLYCERIN [Concomitant]
     Route: 065
     Dates: start: 20030313
  27. LINSEED OIL [Concomitant]
     Route: 065
     Dates: start: 20030313

REACTIONS (37)
  - ABDOMINAL PAIN [None]
  - ACUTE MYOCARDIAL INFARCTION [None]
  - ACUTE PSYCHOSIS [None]
  - AMNESIA [None]
  - ANXIETY [None]
  - ASTHMA [None]
  - BACK DISORDER [None]
  - BACK PAIN [None]
  - BLOOD TRIGLYCERIDES INCREASED [None]
  - BRONCHITIS ACUTE [None]
  - CARDIAC FAILURE CONGESTIVE [None]
  - CHEST PAIN [None]
  - CHRONIC OBSTRUCTIVE PULMONARY DISEASE [None]
  - CORONARY ARTERY DISEASE [None]
  - CORONARY ARTERY THROMBOSIS [None]
  - DIARRHOEA [None]
  - EUTHYROID SICK SYNDROME [None]
  - FIBROMYALGIA [None]
  - GASTROENTERITIS [None]
  - HAEMORRHAGE [None]
  - HALLUCINATION [None]
  - HEADACHE [None]
  - HERPES SIMPLEX [None]
  - HYPERLIPIDAEMIA [None]
  - HYPERTENSION [None]
  - IRRITABLE BOWEL SYNDROME [None]
  - ISCHAEMIC CARDIOMYOPATHY [None]
  - NASAL DISORDER [None]
  - NAUSEA [None]
  - NECK PAIN [None]
  - PANIC DISORDER [None]
  - PYELONEPHRITIS ACUTE [None]
  - RENAL CYST [None]
  - SLEEP APNOEA SYNDROME [None]
  - SPONDYLOLISTHESIS [None]
  - URINARY TRACT INFECTION [None]
  - VASCULAR PSEUDOANEURYSM [None]
